FAERS Safety Report 4479668-X (Version None)
Quarter: 2004Q4

REPORT INFORMATION
  Report Type: 
  Country: None (occurrence: None)
  Receive Date: 20041015
  Receipt Date: 20041005
  Transmission Date: 20050328
  Serious: Yes (Hospitalization)
  Sender: FDA-Public Use
  Company Number: DE-2004-033046

PATIENT
  Age: 36 Year
  Sex: Male
  Weight: 84 kg

DRUGS (3)
  1. BETAFERON (INTERFERON BETA - 1B) [Suspect]
     Indication: MULTIPLE SCLEROSIS
     Dosage: 4 MIU, EVERY 2D, SUBCUTANEOUS
     Route: 058
     Dates: start: 20010207
  2. DOXYCYCLINE           ^RATIOPHARM^ (DOXYCYCLINE HYCLATE) [Suspect]
     Indication: ANGINA PECTORIS
     Dosage: 100 MG, 2X/DAY, ORAL
     Route: 048
     Dates: start: 20040601, end: 20040601
  3. DOXYCYCLINE               ^RATIOPHARM^ REGIMEN #2 [Suspect]
     Dosage: 100 MG, 1X/DAY, ORAL
     Route: 048
     Dates: start: 20040602, end: 20040604

REACTIONS (2)
  - ANGINA PECTORIS [None]
  - VENTRICULAR EXTRASYSTOLES [None]
